FAERS Safety Report 17028095 (Version 1)
Quarter: 2019Q4

REPORT INFORMATION
  Report Type: Spontaneous
  Country: JP (occurrence: JP)
  Receive Date: 20191113
  Receipt Date: 20191113
  Transmission Date: 20200122
  Serious: Yes (Other)
  Sender: FDA-Public Use
  Company Number: NVSJ2019JP001503

PATIENT
  Age: 58 Year
  Sex: Female

DRUGS (1)
  1. NEORAL [Suspect]
     Active Substance: CYCLOSPORINE
     Indication: SYSTEMIC LUPUS ERYTHEMATOSUS
     Dosage: 50 MG(IN THE MORNING), 100MG(IN THE EVENING)
     Route: 048

REACTIONS (3)
  - Product use in unapproved indication [Unknown]
  - Lupus enteritis [Unknown]
  - Concomitant disease progression [Unknown]
